FAERS Safety Report 9936579 (Version 2)
Quarter: 2014Q2

REPORT INFORMATION
  Report Type: Spontaneous
  Country: US (occurrence: US)
  Receive Date: 20140228
  Receipt Date: 20140411
  Transmission Date: 20141212
  Serious: Yes (Other)
  Sender: FDA-Public Use
  Company Number: US-AMGEN-USASP2014007074

PATIENT
  Age: 63 Year
  Sex: Female

DRUGS (2)
  1. ENBREL [Suspect]
     Indication: RHEUMATOID ARTHRITIS
     Dosage: 50 MG, Q3WK
     Route: 065
     Dates: start: 20091213
  2. NOVOCAIN [Suspect]
     Indication: GINGIVAL RECESSION
     Dosage: UNK
     Route: 065

REACTIONS (15)
  - Burns third degree [Not Recovered/Not Resolved]
  - Burns second degree [Not Recovered/Not Resolved]
  - Accident [Not Recovered/Not Resolved]
  - Scar [Not Recovered/Not Resolved]
  - Skin lesion [Not Recovered/Not Resolved]
  - Skin discolouration [Not Recovered/Not Resolved]
  - Spider vein [Not Recovered/Not Resolved]
  - Pharyngeal hypoaesthesia [Recovered/Resolved]
  - Gingival recession [Recovered/Resolved]
  - Tension [Recovered/Resolved]
  - Incorrect route of drug administration [Recovered/Resolved]
  - Injection site haemorrhage [Recovered/Resolved]
  - Injection site bruising [Recovered/Resolved]
  - Injection site pain [Unknown]
  - Injection site swelling [Recovered/Resolved]
